FAERS Safety Report 18150939 (Version 1)
Quarter: 2020Q3

REPORT INFORMATION
  Report Type: Spontaneous
  Country: US (occurrence: US)
  Receive Date: 20200814
  Receipt Date: 20200814
  Transmission Date: 20201103
  Serious: No
  Sender: FDA-Public Use
  Company Number: US-VERTEX PHARMACEUTICALS-2020-015806

PATIENT
  Age: 21 Year
  Sex: Female

DRUGS (2)
  1. TRIKAFTA [Suspect]
     Active Substance: ELEXACAFTOR\IVACAFTOR\TEZACAFTOR
     Indication: CYSTIC FIBROSIS
     Dosage: 100MG ELEXACAFTOR/50MG TEZACAFTOR/75MG IVACAFTOR AND 150MG IVACAFTOR, REGULAR DOSAGE
     Route: 048
     Dates: start: 20191202, end: 20200504
  2. XOLAIR [Concomitant]
     Active Substance: OMALIZUMAB

REACTIONS (5)
  - Vomiting [Unknown]
  - Temperature intolerance [Not Recovered/Not Resolved]
  - Illness [Unknown]
  - Hypersomnia [Not Recovered/Not Resolved]
  - Migraine [Recovering/Resolving]

NARRATIVE: CASE EVENT DATE: 201912
